FAERS Safety Report 4707299-2 (Version None)
Quarter: 2005Q3

REPORT INFORMATION
  Report Type: 
  Country: None (occurrence: None)
  Receive Date: 20050706
  Receipt Date: 20050621
  Transmission Date: 20060218
  Serious: Yes (Other)
  Sender: FDA-Public Use
  Company Number: JP-MERCK-0506USA03429

PATIENT
  Age: 76 Year
  Sex: Female

DRUGS (5)
  1. COZAAR [Suspect]
     Indication: HYPERTENSION
     Route: 048
     Dates: start: 20050404, end: 20050615
  2. GLUFAST [Suspect]
     Indication: DIABETES MELLITUS
     Route: 048
     Dates: start: 20050421
  3. LIPOVAS [Concomitant]
     Indication: HYPERLIPIDAEMIA
     Route: 048
     Dates: start: 20050325, end: 20050617
  4. NORVASC [Concomitant]
     Indication: HYPERTENSION
     Route: 048
     Dates: start: 20050325
  5. URSODIOL [Concomitant]
     Indication: BILIARY TRACT DISORDER
     Route: 048
     Dates: start: 20050325

REACTIONS (1)
  - LEUKOPENIA [None]
